FAERS Safety Report 5806166-0 (Version None)
Quarter: 2008Q3

REPORT INFORMATION
  Report Type: 
  Country: None (occurrence: None)
  Receive Date: 20080709
  Receipt Date: 20080709
  Transmission Date: 20090109
  Serious: Yes (Hospitalization)
  Sender: FDA-Public Use
  Company Number: None

PATIENT
  Age: 47 Year
  Sex: Male
  Weight: 89.4 kg

DRUGS (2)
  1. AMOXICILLIN [Suspect]
     Indication: ENDODONTIC PROCEDURE
     Dosage: 500 MG TID PO
     Route: 048
     Dates: start: 20080401, end: 20080407
  2. IBUPROFEN [Suspect]
     Indication: PAIN
     Dosage: 200 MG PO
     Route: 048
     Dates: start: 20080401, end: 20080407

REACTIONS (1)
  - ERYTHEMA MULTIFORME [None]
